FAERS Safety Report 4309472-4 (Version None)
Quarter: 2004Q1

REPORT INFORMATION
  Report Type: 
  Country: None (occurrence: None)
  Receive Date: 20040301
  Receipt Date: 20040217
  Transmission Date: 20041129
  Serious: No
  Sender: FDA-Public Use
  Company Number: 04H-062-0250453-00

PATIENT
  Age: 82 Year
  Sex: Female

DRUGS (1)
  1. HEPARIN SODIUM [Suspect]
     Indication: ANTICOAGULANT THERAPY

REACTIONS (6)
  - CAVERNOUS SINUS THROMBOSIS [None]
  - CONJUNCTIVAL OEDEMA [None]
  - DIVERTICULITIS [None]
  - EXOPHTHALMOS [None]
  - EYE MOVEMENT DISORDER [None]
  - HEPARIN-INDUCED THROMBOCYTOPENIA [None]
